FAERS Safety Report 21033459 (Version 1)
Quarter: 2022Q3

REPORT INFORMATION
  Report Type: Report from Study
  Country: US (occurrence: US)
  Receive Date: 20220701
  Receipt Date: 20220701
  Transmission Date: 20221027
  Serious: Yes (Other)
  Sender: FDA-Public Use
  Company Number: US-BAYER-2022A091636

PATIENT

DRUGS (1)
  1. BAYER BACK AND BODY EXTRA STRENGTH [Suspect]
     Active Substance: ASPIRIN\CAFFEINE
     Indication: Myalgia
     Dosage: UNK
     Route: 048
     Dates: start: 202206

REACTIONS (3)
  - Foreign body in throat [Unknown]
  - Therapeutic product effect incomplete [None]
  - Product use complaint [Unknown]

NARRATIVE: CASE EVENT DATE: 20220601
